FAERS Safety Report 18140603 (Version 1)
Quarter: 2020Q3

REPORT INFORMATION
  Report Type: Spontaneous
  Country: AU (occurrence: AU)
  Receive Date: 20200812
  Receipt Date: 20200812
  Transmission Date: 20201103
  Serious: Yes (Other)
  Sender: FDA-Public Use
  Company Number: NVSC2020AU220331

PATIENT
  Age: 55 Year
  Sex: Male

DRUGS (1)
  1. FINGOLIMOD. [Suspect]
     Active Substance: FINGOLIMOD
     Indication: PRODUCT USED FOR UNKNOWN INDICATION
     Dosage: UNK
     Route: 065

REACTIONS (6)
  - Secondary progressive multiple sclerosis [Unknown]
  - Therapeutic product effect decreased [Unknown]
  - Autonomic nervous system imbalance [Unknown]
  - Cognitive disorder [Unknown]
  - Muscle spasticity [Unknown]
  - Lymphocyte count abnormal [Unknown]
